FAERS Safety Report 8791006 (Version 1)
Quarter: 2012Q4

REPORT INFORMATION
  Report Type: Spontaneous
  Country: MX (occurrence: None)
  Receive Date: 20120907
  Receipt Date: 20120907
  Transmission Date: 20130627
  Serious: Yes (Other)
  Sender: FDA-Public Use
  Company Number: ENTC2012-0157

PATIENT
  Age: 40 Year
  Sex: Male

DRUGS (1)
  1. STALEVO (LEVODOPA, CARBIDOPA, ENTACAPONE) [Suspect]
     Dosage: 1 DF per day; strength 100/25/200 mg
     Dates: start: 20120327, end: 20120401

REACTIONS (2)
  - Road traffic accident [None]
  - Radius fracture [None]
